FAERS Safety Report 24669264 (Version 1)
Quarter: 2024Q4

REPORT INFORMATION
  Report Type: Spontaneous
  Country: US (occurrence: None)
  Receive Date: 20241126
  Receipt Date: 20241126
  Transmission Date: 20250114
  Serious: Yes (Other)
  Sender: Public
  Company Number: None

PATIENT
  Age: 69 Year
  Sex: Male

DRUGS (9)
  1. LENALIDOMIDE [Suspect]
     Active Substance: LENALIDOMIDE
     Indication: Plasma cell myeloma
     Dosage: FREQUENCY : DAILY;?
     Route: 048
     Dates: start: 20241016
  2. DEXAMETHASONE [Concomitant]
     Active Substance: DEXAMETHASONE
  3. SIMVASTATIN [Concomitant]
     Active Substance: SIMVASTATIN
  4. MONTELUKAST [Concomitant]
     Active Substance: MONTELUKAST
  5. ACYCLOVIR [Concomitant]
     Active Substance: ACYCLOVIR
  6. NITROSTAT [Concomitant]
     Active Substance: NITROGLYCERIN
  7. BACTRIM [Concomitant]
     Active Substance: SULFAMETHOXAZOLE\TRIMETHOPRIM
  8. LISINOPRIL [Concomitant]
     Active Substance: LISINOPRIL
  9. ASPIRIN [Concomitant]
     Active Substance: ASPIRIN

REACTIONS (1)
  - Deep vein thrombosis [None]

NARRATIVE: CASE EVENT DATE: 20241123
